FAERS Safety Report 9313666 (Version 1)
Quarter: 2013Q2

REPORT INFORMATION
  Report Type: Spontaneous
  Country: DE (occurrence: DE)
  Receive Date: 20130529
  Receipt Date: 20130529
  Transmission Date: 20140414
  Serious: Yes (Hospitalization, Other)
  Sender: FDA-Public Use
  Company Number: DE-AMGEN-DEUSP2013037695

PATIENT
  Age: 71 Year
  Sex: Male

DRUGS (11)
  1. ENBREL [Suspect]
     Indication: PSORIASIS
     Dosage: 50 MG, WEEKLY
     Dates: start: 20121127
  2. BISOPROLOL [Concomitant]
     Dosage: 10 MG, UNK
  3. TORASEMIDE [Concomitant]
     Dosage: 10 MG, UNK
  4. L-THYROXIN [Concomitant]
     Dosage: 100 UNK, UNK
  5. PANTOPRAZOL [Concomitant]
     Dosage: 20 MG, UNK
  6. SIMVASTATIN [Concomitant]
     Dosage: 20 MG, UNK
  7. ALLOPURINOL [Concomitant]
     Dosage: UNK
  8. LERCANIDIPINE [Concomitant]
     Dosage: 20 MG, UNK
  9. JANUVIA [Concomitant]
     Dosage: UNK
  10. CANDESARTAN [Concomitant]
     Dosage: UNK
  11. DOXAZOSIN [Concomitant]
     Dosage: UNK

REACTIONS (5)
  - Myocardial infarction [Unknown]
  - Skin haemorrhage [Unknown]
  - Skin lesion [Unknown]
  - Oedema peripheral [Unknown]
  - Impaired healing [Unknown]
